FAERS Safety Report 9520362 (Version 1)
Quarter: 2013Q3

REPORT INFORMATION
  Report Type: Spontaneous
  Country: SG (occurrence: SG)
  Receive Date: 20130912
  Receipt Date: 20130912
  Transmission Date: 20140515
  Serious: Yes (Hospitalization)
  Sender: FDA-Public Use
  Company Number: SG-PFIZER INC-2013257503

PATIENT
  Age: 20 Year
  Sex: Male
  Weight: 65 kg

DRUGS (4)
  1. LIDOCAINE HCL [Suspect]
     Indication: LOCAL ANAESTHESIA
     Dosage: 300 MG, 1 TIME STAT
     Route: 048
     Dates: start: 20130731, end: 20130731
  2. MIDAZOLAM [Suspect]
     Indication: PREMEDICATION
     Dosage: 1 MG, 1 TIME STAT
     Route: 042
     Dates: start: 20130731, end: 20130731
  3. MIDAZOLAM [Suspect]
     Indication: SEDATION
  4. XYLOCAINE [Suspect]
     Dosage: 30 MG, 1 TIME STAT
     Route: 061
     Dates: start: 20130731, end: 20130731

REACTIONS (1)
  - Rash [Recovered/Resolved]
